FAERS Safety Report 6331757-0 (Version None)
Quarter: 2009Q3

REPORT INFORMATION
  Report Type: 
  Country: None (occurrence: None)
  Receive Date: 20090826
  Receipt Date: 20090818
  Transmission Date: 20100115
  Serious: Yes (Hospitalization)
  Sender: FDA-Public Use
  Company Number: 2009004219

PATIENT
  Age: 35 Year
  Sex: Male
  Weight: 87.0906 kg

DRUGS (2)
  1. NUVIGIL [Suspect]
     Indication: SCHIZOPHRENIA
     Dosage: 150 MG (150 MG, 1 IN 1 D), ORAL
     Route: 048
     Dates: start: 20090410, end: 20090422
  2. ZYPREXA [Concomitant]

REACTIONS (2)
  - CONDITION AGGRAVATED [None]
  - SCHIZOPHRENIA [None]
